FAERS Safety Report 4712260-8 (Version None)
Quarter: 2005Q3

REPORT INFORMATION
  Report Type: 
  Country: None (occurrence: None)
  Receive Date: 20050712
  Receipt Date: 20050704
  Transmission Date: 20060218
  Serious: Yes (Hospitalization)
  Sender: FDA-Public Use
  Company Number: US-GLAXOSMITHKLINE-B0386750A

PATIENT
  Age: 39 Year
  Sex: Male
  Weight: 84 kg

DRUGS (10)
  1. LAMIVUDINE [Suspect]
     Indication: HEPATITIS B
     Dosage: 100MG PER DAY
     Route: 048
     Dates: start: 20050518, end: 20050531
  2. BISOPROLOL [Concomitant]
     Indication: HYPERTENSION
     Dosage: 10MG PER DAY
     Route: 048
  3. AMLODIPINE [Concomitant]
     Indication: HYPERTENSION
     Dosage: 10MG PER DAY
     Route: 048
  4. RANITIDINE [Concomitant]
     Indication: PROPHYLAXIS AGAINST GASTROINTESTINAL ULCER
     Dosage: 150MG PER DAY
     Route: 048
  5. ISONIAZID [Concomitant]
     Indication: TUBERCULOSIS PROPHYLAXIS
     Dosage: 100MG PER DAY
     Route: 048
  6. PYRIDOXINE HCL [Concomitant]
     Dosage: 12.5MG PER DAY
     Route: 048
  7. LOSARTAN [Concomitant]
     Indication: HYPERTENSION
     Dosage: 50MG PER DAY
     Route: 048
  8. MYCOPHENOLATE MOFETIL [Concomitant]
     Indication: PROPHYLAXIS AGAINST TRANSPLANT REJECTION
     Dosage: 500MG PER DAY
     Route: 048
  9. NEORAL [Concomitant]
     Indication: PROPHYLAXIS AGAINST TRANSPLANT REJECTION
     Dosage: 150MG PER DAY
     Route: 048
  10. ARANESP [Concomitant]
     Indication: ANAEMIA
     Dosage: 40MCG CYCLIC
     Route: 058

REACTIONS (1)
  - NEPHRITIS INTERSTITIAL [None]
